FAERS Safety Report 16404535 (Version 3)
Quarter: 2019Q3

REPORT INFORMATION
  Report Type: Spontaneous
  Country: US (occurrence: US)
  Receive Date: 20190607
  Receipt Date: 20190726
  Transmission Date: 20191004
  Serious: No
  Sender: FDA-Public Use
  Company Number: US-PFIZER INC-2019244071

PATIENT
  Age: 77 Year
  Sex: Female

DRUGS (1)
  1. TOVIAZ [Suspect]
     Active Substance: FESOTERODINE FUMARATE
     Indication: CYSTITIS
     Dosage: 8 MG, 1X/DAY

REACTIONS (4)
  - Influenza [Recovered/Resolved]
  - Memory impairment [Unknown]
  - Malaise [Recovered/Resolved]
  - Intentional product misuse [Unknown]
